FAERS Safety Report 18159649 (Version 1)
Quarter: 2020Q3

REPORT INFORMATION
  Report Type: Report from Study
  Country: BR (occurrence: BR)
  Receive Date: 20200817
  Receipt Date: 20200817
  Transmission Date: 20201103
  Serious: Yes (Other)
  Sender: FDA-Public Use
  Company Number: NVSC2020BR225418

PATIENT
  Sex: Female

DRUGS (1)
  1. TRAVATAN [Suspect]
     Active Substance: TRAVOPROST
     Indication: PRODUCT USED FOR UNKNOWN INDICATION
     Dosage: UNK
     Route: 065

REACTIONS (10)
  - Nervousness [Unknown]
  - Agitation [Unknown]
  - Pruritus [Recovering/Resolving]
  - Expired product administered [Unknown]
  - Cognitive disorder [Unknown]
  - Fear [Unknown]
  - Anxiety [Unknown]
  - Eye pain [Recovering/Resolving]
  - Diabetes mellitus [Unknown]
  - Ill-defined disorder [Unknown]
